FAERS Safety Report 4359154-8 (Version None)
Quarter: 2004Q2

REPORT INFORMATION
  Report Type: 
  Country: None (occurrence: None)
  Receive Date: 20040512
  Receipt Date: 20040422
  Transmission Date: 20050107
  Serious: Yes (Other)
  Sender: FDA-Public Use
  Company Number: USA040360905

PATIENT
  Age: 74 Year
  Sex: Male

DRUGS (2)
  1. HUMULIN R [Suspect]
     Indication: DIABETES MELLITUS
  2. HUMALOG MIX 75/25 [Suspect]
     Dosage: 130 U DAY
     Dates: start: 20040215

REACTIONS (4)
  - ERYTHEMA [None]
  - PHARMACEUTICAL PRODUCT COMPLAINT [None]
  - PRURITUS [None]
  - VISUAL ACUITY REDUCED [None]
